FAERS Safety Report 24094888 (Version 1)
Quarter: 2024Q3

REPORT INFORMATION
  Report Type: Spontaneous
  Country: PT (occurrence: PT)
  Receive Date: 20240716
  Receipt Date: 20240716
  Transmission Date: 20241017
  Serious: Yes (Other)
  Sender: TERSERA THERAPEUTICS
  Company Number: PT-DSJP-DSE-2024-129985

PATIENT

DRUGS (3)
  1. GOSERELIN [Interacting]
     Active Substance: GOSERELIN
     Indication: Prostate cancer
     Dosage: UNK
     Route: 058
     Dates: start: 202307
  2. ZOLADEX [Suspect]
     Active Substance: GOSERELIN ACETATE
     Indication: Prostate cancer
     Dosage: UNK
     Route: 065
  3. EDOXABAN [Interacting]
     Active Substance: EDOXABAN
     Indication: Product used for unknown indication
     Dosage: 345 NG/ML345.0NG/ML UNKNOWN
     Route: 065
     Dates: start: 2018

REACTIONS (2)
  - Pulmonary alveolar haemorrhage [Unknown]
  - Drug interaction [Unknown]
